FAERS Safety Report 13450791 (Version 1)
Quarter: 2017Q2

REPORT INFORMATION
  Report Type: Spontaneous
  Country: US (occurrence: US)
  Receive Date: 20170417
  Receipt Date: 20170417
  Transmission Date: 20170830
  Serious: No
  Sender: FDA-Public Use
  Company Number: None

PATIENT
  Age: 50 Year
  Sex: Female

DRUGS (12)
  1. PROZAC [Concomitant]
     Active Substance: FLUOXETINE HYDROCHLORIDE
  2. FARXIGA [Concomitant]
     Active Substance: DAPAGLIFLOZIN PROPANEDIOL
  3. COCO BEAN [Concomitant]
  4. IMITREX [Concomitant]
     Active Substance: SUMATRIPTAN SUCCINATE
  5. BIOTIN [Concomitant]
     Active Substance: BIOTIN
  6. IRON [Concomitant]
     Active Substance: IRON
  7. ASPIRIN. [Concomitant]
     Active Substance: ASPIRIN
  8. ALEVE [Concomitant]
     Active Substance: NAPROXEN SODIUM
  9. NITROGLYCER [Concomitant]
  10. BOTOX [Suspect]
     Active Substance: ONABOTULINUMTOXINA
     Indication: MIGRAINE
     Dosage: Q90 D
     Route: 030
     Dates: start: 20150218
  11. ROBAXINE [Concomitant]
  12. FOLIC ACID. [Concomitant]
     Active Substance: FOLIC ACID

REACTIONS (2)
  - Hypotension [None]
  - Ocular discomfort [None]

NARRATIVE: CASE EVENT DATE: 201703
